FAERS Safety Report 4723198-4 (Version None)
Quarter: 2005Q3

REPORT INFORMATION
  Report Type: 
  Country: None (occurrence: None)
  Receive Date: 20050720
  Receipt Date: 20050715
  Transmission Date: 20060218
  Serious: Yes (Hospitalization, Other)
  Sender: FDA-Public Use
  Company Number: 2005US-00589

PATIENT
  Age: 72 Year
  Sex: Male

DRUGS (1)
  1. ENALAPRIL MALEATE [Suspect]
     Indication: CARDIAC DISORDER

REACTIONS (11)
  - ANAEMIA [None]
  - AORTIC VALVE STENOSIS [None]
  - AZOTAEMIA [None]
  - BLOOD PRESSURE SYSTOLIC INCREASED [None]
  - DECREASED APPETITE [None]
  - GLOMERULAR FILTRATION RATE DECREASED [None]
  - HAEMODIALYSIS [None]
  - HYPERKALAEMIA [None]
  - RENAL DISORDER [None]
  - RENAL ISCHAEMIA [None]
  - WEIGHT DECREASED [None]
